FAERS Safety Report 6836284-X (Version None)
Quarter: 2010Q3

REPORT INFORMATION
  Report Type: 
  Country: None (occurrence: None)
  Receive Date: 20100713
  Receipt Date: 20100406
  Transmission Date: 20110219
  Serious: No
  Sender: FDA-Public Use
  Company Number: US-TYCO HEALTHCARE/MALLINCKRODT-T201001030

PATIENT

DRUGS (9)
  1. OXYCODONE HCL [Suspect]
     Indication: PAIN
     Dosage: 1-2 TABS  Q 4 HRS PRN
     Route: 048
     Dates: start: 20100317, end: 20100405
  2. CYMBALTA [Concomitant]
     Indication: DEPRESSION
     Dosage: 90 MG, QAM
     Route: 048
  3. CALCIUM [Concomitant]
     Indication: SUPPLEMENTATION THERAPY
     Dosage: 1 TABLET, QD
     Route: 048
  4. IRON [Concomitant]
     Indication: ANAEMIA
     Dosage: 325 MG, BID
     Route: 048
  5. TOPAMAX [Concomitant]
     Indication: MIGRAINE
     Dosage: 1 TABLET, PRN
     Route: 048
  6. XANAX XR [Concomitant]
     Indication: ANXIETY
     Dosage: 1 TABLET , PRN
     Route: 048
  7. CLARITHROMYCIN [Concomitant]
     Indication: EAR INFECTION
     Dosage: 500 MG, X 10 DAYS
     Route: 048
     Dates: start: 20100403
  8. PERCOCET [Concomitant]
     Indication: PAIN
  9. OXYCODONE HCL EXTENDED-RELEASE [Concomitant]
     Indication: PAIN

REACTIONS (2)
  - JOINT SWELLING [None]
  - PRURITUS [None]
